FAERS Safety Report 18469716 (Version 1)
Quarter: 2020Q4

REPORT INFORMATION
  Report Type: Spontaneous
  Country: US (occurrence: US)
  Receive Date: 20201105
  Receipt Date: 20201105
  Transmission Date: 20210114
  Serious: Yes (Other)
  Sender: FDA-Public Use
  Company Number: US-ALLERGAN-2043068US

PATIENT

DRUGS (1)
  1. NORCO [Suspect]
     Active Substance: ACETAMINOPHEN\HYDROCODONE BITARTRATE
     Indication: EXPOSURE DURING PREGNANCY
     Route: 064

REACTIONS (2)
  - Neonatal complications of substance abuse [Unknown]
  - Pregnancy [Unknown]
